FAERS Safety Report 7171207-8 (Version None)
Quarter: 2010Q4

REPORT INFORMATION
  Report Type: 
  Country: None (occurrence: None)
  Receive Date: 20101217
  Receipt Date: 20101110
  Transmission Date: 20110411
  Serious: No
  Sender: FDA-Public Use
  Company Number: US-JNJFOC-20101104209

PATIENT
  Sex: Male
  Weight: 107.05 kg

DRUGS (1)
  1. INVEGA [Suspect]
     Indication: SCHIZOPHRENIA
     Dosage: 6 MG + 3 MG DAILY
     Route: 048

REACTIONS (1)
  - PENILE DISCHARGE [None]
